FAERS Safety Report 7719594-3 (Version None)
Quarter: 2011Q3

REPORT INFORMATION
  Report Type: 
  Country: None (occurrence: None)
  Receive Date: 20110830
  Receipt Date: 20110822
  Transmission Date: 20111222
  Serious: Yes (Hospitalization, Other)
  Sender: FDA-Public Use
  Company Number: US-BAYER-2011-022490

PATIENT
  Age: 40 Year
  Sex: Female
  Weight: 44 kg

DRUGS (7)
  1. SINGULAIR [Concomitant]
  2. AZMACORT [Concomitant]
  3. YASMIN [Suspect]
     Indication: PREMENSTRUAL SYNDROME
  4. DROSPIRENONE AND ETHINYL ESTRADIOL [Suspect]
     Indication: CONTRACEPTION
     Dosage: UNK
     Dates: start: 20080901
  5. DROSPIRENONE AND ETHINYL ESTRADIOL [Suspect]
     Indication: PREMENSTRUAL SYNDROME
  6. VENTOLIN HFA [Concomitant]
  7. YASMIN [Suspect]
     Indication: CONTRACEPTION
     Dosage: UNK
     Dates: start: 20041201, end: 20080701

REACTIONS (5)
  - INJURY [None]
  - CHOLECYSTITIS [None]
  - GALLBLADDER INJURY [None]
  - CHOLELITHIASIS [None]
  - PANCREATITIS [None]
